FAERS Safety Report 4388864-1 (Version None)
Quarter: 2004Q2

REPORT INFORMATION
  Report Type: 
  Country: None (occurrence: None)
  Receive Date: 20040624
  Receipt Date: 20040609
  Transmission Date: 20050107
  Serious: Yes (Life-Threatening, Hospitalization)
  Sender: FDA-Public Use
  Company Number: A01200401826

PATIENT
  Age: 71 Year
  Sex: Female

DRUGS (7)
  1. PLAVIX [Suspect]
     Indication: ARTERITIS
     Route: 048
     Dates: start: 20030701, end: 20040201
  2. MODOPAR (BENSERAZIDE HYDROCHLORIDE + LEVODOPA) [Concomitant]
  3. REQUIP [Concomitant]
  4. COMTAN [Concomitant]
  5. DIAMICRON (GLICLAZIDE) [Concomitant]
  6. ZOCOR [Concomitant]
  7. LORAZEPAM [Concomitant]

REACTIONS (1)
  - PULMONARY EMBOLISM [None]
